FAERS Safety Report 25023525 (Version 2)
Quarter: 2025Q2

REPORT INFORMATION
  Report Type: Other
  Country: NL (occurrence: NL)
  Receive Date: 20250228
  Receipt Date: 20250402
  Transmission Date: 20250717
  Serious: Yes (Hospitalization, Other)
  Sender: TOLMAR
  Company Number: NL-RECGATEWAY-2025000999

PATIENT
  Age: 82 Year
  Sex: Male

DRUGS (4)
  1. ELIGARD [Suspect]
     Active Substance: LEUPROLIDE ACETATE
     Indication: Prostate cancer
     Dosage: 22.5 MILLIGRAM, Q 3 MONTH
     Route: 058
     Dates: start: 20241118
  2. ELIGARD [Suspect]
     Active Substance: LEUPROLIDE ACETATE
     Dosage: 22.5 MILLIGRAM, Q 3 MONTH
     Route: 058
     Dates: start: 20100112
  3. ELIGARD [Suspect]
     Active Substance: LEUPROLIDE ACETATE
     Dosage: 22.5 MILLIGRAM, Q 3 MONTH
     Route: 058
     Dates: start: 20240822
  4. ELIGARD [Suspect]
     Active Substance: LEUPROLIDE ACETATE
     Indication: Prostate cancer

REACTIONS (1)
  - Cerebral infarction [Recovered/Resolved]

NARRATIVE: CASE EVENT DATE: 20250201
